FAERS Safety Report 16298874 (Version 1)
Quarter: 2019Q2

REPORT INFORMATION
  Report Type: Spontaneous
  Country: JP (occurrence: JP)
  Receive Date: 20190510
  Receipt Date: 20190510
  Transmission Date: 20190711
  Serious: Yes (Hospitalization)
  Sender: FDA-Public Use
  Company Number: JP-B.I. PHARMACEUTICALS,INC./RIDGEFIELD-2019-12-001510

PATIENT
  Age: 90 Year
  Sex: Female

DRUGS (10)
  1. EDIROL [Suspect]
     Active Substance: ELDECALCITOL
     Indication: OSTEOPOROSIS
     Route: 048
     Dates: start: 201506, end: 20151217
  2. MYSLEE [Concomitant]
     Active Substance: ZOLPIDEM TARTRATE
     Indication: PRODUCT USED FOR UNKNOWN INDICATION
     Route: 048
  3. URITOS [Suspect]
     Active Substance: IMIDAFENACIN
     Indication: DYSURIA
     Route: 048
     Dates: start: 201506, end: 20151217
  4. AMARYL [Concomitant]
     Active Substance: GLIMEPIRIDE
     Indication: PRODUCT USED FOR UNKNOWN INDICATION
     Route: 048
  5. BEHYD-R. A [Suspect]
     Active Substance: BENZYLHYDROCHLOROTHIAZIDE\CARBAZOCHROME\RESERPINE
     Indication: BLOOD PRESSURE MANAGEMENT
     Route: 048
     Dates: start: 201506, end: 20151217
  6. NEXIUM [Concomitant]
     Active Substance: ESOMEPRAZOLE MAGNESIUM
     Indication: PRODUCT USED FOR UNKNOWN INDICATION
     Route: 048
  7. TRAZENTA [Suspect]
     Active Substance: LINAGLIPTIN
     Indication: DIABETES MELLITUS
     Route: 048
     Dates: start: 201506, end: 20151217
  8. AVAPRO [Suspect]
     Active Substance: IRBESARTAN
     Indication: HYPERTENSION
     Route: 048
     Dates: start: 201506, end: 20151217
  9. LIVALO [Concomitant]
     Active Substance: PITAVASTATIN CALCIUM
     Indication: PRODUCT USED FOR UNKNOWN INDICATION
     Route: 048
     Dates: end: 20150903
  10. URIADEC [Suspect]
     Active Substance: TOPIROXOSTAT
     Indication: HYPERURICAEMIA
     Route: 048
     Dates: start: 201506, end: 20151217

REACTIONS (1)
  - Rhabdomyolysis [Recovered/Resolved]

NARRATIVE: CASE EVENT DATE: 201512
